FAERS Safety Report 11957569 (Version 1)
Quarter: 2016Q1

REPORT INFORMATION
  Report Type: Report from Study
  Country: FR (occurrence: FR)
  Receive Date: 20160126
  Receipt Date: 20160126
  Transmission Date: 20160526
  Serious: Yes (Hospitalization)
  Sender: FDA-Public Use
  Company Number: FR-ABBVIE-16P-056-1542884-00

PATIENT
  Age: 74 Year
  Sex: Female

DRUGS (1)
  1. DUODOPA [Suspect]
     Active Substance: CARBIDOPA\LEVODOPA
     Indication: PRODUCT USED FOR UNKNOWN INDICATION
     Dosage: MD: 3 ML; ED: 1 ML, CONT DAY FLOW RATE: 2.4 ML/H, DAY RHYTHM: 8H  20H,
     Route: 050
     Dates: start: 2012

REACTIONS (2)
  - Device breakage [Unknown]
  - Bezoar [Unknown]

NARRATIVE: CASE EVENT DATE: 201512
